FAERS Safety Report 9958924 (Version 1)
Quarter: 2014Q1

REPORT INFORMATION
  Report Type: Spontaneous
  Country: BD (occurrence: None)
  Receive Date: 20140228
  Receipt Date: 20140228
  Transmission Date: 20141002
  Serious: Yes (Other)
  Sender: FDA-Public Use
  Company Number: 2014P1001608

PATIENT
  Age: 50 Year
  Sex: Male

DRUGS (4)
  1. ISONIAZID [Suspect]
     Indication: TUBERCULOUS PLEURISY
     Route: 048
  2. ETHAMBUTOL [Suspect]
     Indication: TUBERCULOUS PLEURISY
     Route: 048
  3. RIFAMPIN [Suspect]
     Indication: TUBERCULOUS PLEURISY
     Route: 048
  4. PYRAZINAMIDE [Suspect]
     Indication: TUBERCULOUS PLEURISY
     Route: 048

REACTIONS (1)
  - Anaphylactic reaction [None]
